FAERS Safety Report 23662180 (Version 1)
Quarter: 2024Q1

REPORT INFORMATION
  Report Type: Report from Study
  Country: EG (occurrence: EG)
  Receive Date: 20240322
  Receipt Date: 20240322
  Transmission Date: 20240410
  Serious: Yes (Hospitalization)
  Sender: FDA-Public Use
  Company Number: EG-SANDOZ-SDZ2024EG029159

PATIENT
  Age: 3 Year
  Sex: Male
  Weight: 18 kg

DRUGS (11)
  1. OMNITROPE [Suspect]
     Active Substance: SOMATROPIN
     Indication: Growth hormone deficiency
     Dosage: 0.3 MG/DAY TO 0.6 MG/DAY DUE TO NORMAL GROWTH RATE
     Route: 058
     Dates: start: 20220202
  2. OMNITROPE [Suspect]
     Active Substance: SOMATROPIN
     Dosage: 0.3 MG/DAY TO 0.6 MG/DAY DUE TO NORMAL GROWTH RATE
     Route: 058
  3. SOMATROPIN [Suspect]
     Active Substance: SOMATROPIN
     Indication: Growth hormone deficiency
     Dosage: 50 UNIT
     Route: 058
     Dates: start: 202307, end: 202308
  4. IBUPROFEN [Concomitant]
     Active Substance: IBUPROFEN
     Indication: Seasonal allergy
     Dosage: 4 CM; START AND STOP DATE: WHEN NEEDED ONLY
     Route: 048
  5. DEXAMETHASONE [Concomitant]
     Active Substance: DEXAMETHASONE
     Indication: Bronchitis
     Dosage: 3 CM; STOP DATE: FOR 1 WEEK
     Route: 030
     Dates: start: 202312
  6. DEXAMETHASONE [Concomitant]
     Active Substance: DEXAMETHASONE
     Indication: Vomiting
     Dosage: 3 CM; STOP DATE: FOR 1 WEEK
     Route: 030
     Dates: start: 202312
  7. FLAGYL [Concomitant]
     Active Substance: METRONIDAZOLE\METRONIDAZOLE HYDROCHLORIDE
     Indication: Seasonal allergy
     Dosage: 5 CM; START AND STOP DATE: WHEN NEEDED ONLY
     Route: 048
  8. Megamox [Concomitant]
     Indication: Seasonal allergy
     Dosage: 5 CM QD; START AND STOP DATE: FROM 1 MONTH FOR 5 DAYS
     Route: 048
  9. SALINE [Concomitant]
     Active Substance: SODIUM CHLORIDE
     Indication: Bronchitis
     Dosage: 9 CM; STOP DATE: FOR 1 WEEK
     Route: 030
     Dates: start: 202312
  10. SUPRAX [Concomitant]
     Active Substance: CEFIXIME
     Indication: Seasonal allergy
     Dosage: 5 CM; START AND STOP DATE: WHEN NEEDED ONLY
     Route: 048
  11. FEXOFENADINE [Concomitant]
     Active Substance: FEXOFENADINE HYDROCHLORIDE
     Indication: Seasonal allergy
     Dosage: 4 CM; START AND STOP DATE: WHEN NEEDED ONLY
     Route: 048

REACTIONS (8)
  - Bronchitis [Recovered/Resolved]
  - Injection site pain [Recovered/Resolved]
  - Drug ineffective [Unknown]
  - Expired device used [Unknown]
  - Multiple use of single-use product [Unknown]
  - Product availability issue [Unknown]
  - Product substitution issue [Unknown]
  - Wrong technique in product usage process [Unknown]

NARRATIVE: CASE EVENT DATE: 20220202
